FAERS Safety Report 23579386 (Version 1)
Quarter: 2024Q1

REPORT INFORMATION
  Report Type: Spontaneous
  Country: FR (occurrence: FR)
  Receive Date: 20240229
  Receipt Date: 20240229
  Transmission Date: 20240409
  Serious: Yes (Hospitalization)
  Sender: FDA-Public Use
  Company Number: None

PATIENT
  Age: 77 Year
  Sex: Female
  Weight: 62 kg

DRUGS (5)
  1. ZOPICLONE [Suspect]
     Active Substance: ZOPICLONE
     Indication: Intentional overdose
     Dosage: 2 BOXES 3.75 MG, DURATION: 1 DAY
     Route: 048
     Dates: start: 20231217, end: 20231217
  2. MIRTAZAPINE [Suspect]
     Active Substance: MIRTAZAPINE
     Indication: Intentional overdose
     Dosage: TIME INTERVAL: TOTAL: 1 BOX 15 MG, DURATION: 1 DAY
     Route: 048
     Dates: start: 20231217, end: 20231217
  3. ACETAMINOPHEN\OPIUM [Suspect]
     Active Substance: ACETAMINOPHEN\OPIUM
     Indication: Intentional overdose
     Dosage: TIME INTERVAL: TOTAL: 1 BOX,  IZALGI 500 MG/25 MG, DURATION: 1DAY
     Route: 048
     Dates: start: 20231217, end: 20231217
  4. OXAZEPAM [Suspect]
     Active Substance: OXAZEPAM
     Indication: Intentional overdose
     Dosage: TIME INTERVAL: TOTAL: 5 BOXES, SERESTA 10 MG TABLET, DURATION: 1 DAY
     Route: 048
     Dates: start: 20231217, end: 20231217
  5. BROMAZEPAM [Suspect]
     Active Substance: BROMAZEPAM
     Indication: Intentional overdose
     Dosage: UNK, DURATION: 1 DAY
     Route: 048
     Dates: start: 20231217, end: 20231217

REACTIONS (2)
  - Poisoning deliberate [Recovered/Resolved]
  - Coma [Recovered/Resolved]

NARRATIVE: CASE EVENT DATE: 20231217
